FAERS Safety Report 7569644-2 (Version None)
Quarter: 2011Q2

REPORT INFORMATION
  Report Type: 
  Country: None (occurrence: None)
  Receive Date: 20110624
  Receipt Date: 20110620
  Transmission Date: 20111010
  Serious: No
  Sender: FDA-Public Use
  Company Number: US-PFIZER INC-2011136629

PATIENT
  Sex: Male

DRUGS (1)
  1. CHILDREN'S ADVIL [Suspect]
     Dosage: UNK
     Route: 048

REACTIONS (2)
  - VOMITING [None]
  - EXPIRED DRUG ADMINISTERED [None]
